FAERS Safety Report 19738118 (Version 1)
Quarter: 2021Q3

REPORT INFORMATION
  Report Type: Spontaneous
  Country: US (occurrence: US)
  Receive Date: 20210823
  Receipt Date: 20210823
  Transmission Date: 20211014
  Serious: No
  Sender: FDA-Public Use
  Company Number: US-SA-2021SA274847

PATIENT
  Age: 31 Year
  Sex: Male

DRUGS (2)
  1. CEREZYME [Suspect]
     Active Substance: IMIGLUCERASE
     Indication: GAUCHER^S DISEASE
     Dosage: 8000 IU, QOW
     Route: 041
     Dates: start: 20140304
  2. CEREZYME [Suspect]
     Active Substance: IMIGLUCERASE
     Dosage: 8000 U, QOW
     Route: 041
     Dates: start: 20170426

REACTIONS (1)
  - Product dose omission issue [Unknown]

NARRATIVE: CASE EVENT DATE: 2021
